FAERS Safety Report 9767783 (Version 3)
Quarter: 2014Q1

REPORT INFORMATION
  Report Type: Spontaneous
  Country: US (occurrence: None)
  Receive Date: 20131213
  Receipt Date: 20140326
  Transmission Date: 20141002
  Serious: Yes (Hospitalization)
  Sender: FDA-Public Use
  Company Number: 2013US002873

PATIENT
  Age: 63 Year
  Sex: Male
  Weight: 76 kg

DRUGS (20)
  1. PONATINIB [Suspect]
     Indication: CHRONIC MYELOID LEUKAEMIA
     Route: 048
     Dates: start: 20121003, end: 20121026
  2. SINGULAIR (MONTELUKAST SODIUIM) [Concomitant]
  3. ATENOLOL (ATENOLOL) [Concomitant]
  4. GEMFIBROZIL (GEMFIBROZIL) [Concomitant]
  5. FLONASE (FLUTICASONE PROIONATE) (AEROSOL (SPRAY AND INHALATION) [Concomitant]
  6. NAPROXEN SODIUM (NAPROXEN SODIUM) [Concomitant]
  7. DIPHENHYDRAMINE (DIPHENHYDRAMINE) [Concomitant]
  8. DOCUSATE (DOCUSATE) [Concomitant]
  9. LOVENOX (ENOXAPARIN SODIUM) [Concomitant]
  10. OMEPRAZOLE (OMEPRAZOLE) [Concomitant]
  11. TYLENOL (PARACETAMOL) [Concomitant]
  12. VESICARE (SOLFENACIN SUCCINATE) [Concomitant]
  13. ZYRTEC (CETIRIZINE HYDROCHLORIDE) [Concomitant]
  14. LISINOPRIL (LISINOPRIL) [Concomitant]
  15. POTASSIUM CHLORIDE) (POTASSIUM CHLORIDE) [Concomitant]
  16. EYE DROPS [Concomitant]
  17. NAPROSYN (NAPROXEN SODIUM) [Concomitant]
  18. HYDROCHLOROTHIAZIDE (HYDROCHLOROTHIAZIDE) [Concomitant]
  19. OXYBUTYNIN (OXYBUTYNIN) [Concomitant]
  20. TOVIAZ (FESOTERODINE FUMARATE) [Concomitant]

REACTIONS (21)
  - Failure to thrive [None]
  - Nausea [None]
  - Vomiting [None]
  - Weight decreased [None]
  - Fatigue [None]
  - Body temperature decreased [None]
  - Blood pressure diastolic decreased [None]
  - Heart rate decreased [None]
  - White blood cell count increased [None]
  - Haemoglobin decreased [None]
  - Blood sodium decreased [None]
  - Sinus bradycardia [None]
  - Proctitis [None]
  - Nephrolithiasis [None]
  - Bladder disorder [None]
  - Pyuria [None]
  - Calcification metastatic [None]
  - Pulmonary calcification [None]
  - Drug dose omission [None]
  - Blood potassium increased [None]
  - Blood chloride increased [None]
